FAERS Safety Report 9849317 (Version 1)
Quarter: 2014Q1

REPORT INFORMATION
  Report Type: Spontaneous
  Country: US (occurrence: US)
  Receive Date: 20140128
  Receipt Date: 20140128
  Transmission Date: 20141002
  Serious: Yes (Other)
  Sender: FDA-Public Use
  Company Number: CHPA2014US001083

PATIENT
  Age: 28 Year
  Sex: Female

DRUGS (3)
  1. EXCEDRIN MIGRAINE [Suspect]
     Indication: HEADACHE
     Dosage: 2 UNK, UNK
     Route: 048
  2. EXCEDRIN MIGRAINE [Suspect]
     Indication: OFF LABEL USE
  3. EXCEDRIN EXTRA STRENGTH [Suspect]
     Indication: HEADACHE
     Dosage: 2 DF, UNK
     Route: 048
     Dates: start: 20131212, end: 20131212

REACTIONS (7)
  - Grand mal convulsion [Recovered/Resolved]
  - Loss of consciousness [Recovered/Resolved]
  - Fall [Unknown]
  - Lip injury [Unknown]
  - Lip haemorrhage [Unknown]
  - Lip pain [Unknown]
  - Feeling abnormal [Recovering/Resolving]
